FAERS Safety Report 8759512 (Version 3)
Quarter: 2013Q1

REPORT INFORMATION
  Report Type: Spontaneous
  Country: US (occurrence: US)
  Receive Date: 20120829
  Receipt Date: 20130121
  Transmission Date: 20140127
  Serious: No
  Sender: FDA-Public Use
  Company Number: US-009507513-1208USA010768

PATIENT
  Age: 62 None
  Sex: Male

DRUGS (4)
  1. PEGINTRON [Suspect]
     Indication: HEPATITIS C
     Dosage: 180 MICROGRAM, QW
     Route: 058
     Dates: start: 20120801
  2. INCIVEK [Suspect]
     Indication: HEPATITIS C
     Dosage: 750 MG, TID
  3. RIBASPHERE [Suspect]
     Indication: HEPATITIS C
     Dosage: 600 MG QAM, 800 MG QPM
     Dates: end: 2012
  4. RIBASPHERE [Suspect]
     Dosage: 600 MG DAILY
     Dates: start: 2012

REACTIONS (4)
  - Anaemia [Unknown]
  - Headache [Unknown]
  - Pyrexia [Unknown]
  - Underdose [Unknown]
